FAERS Safety Report 18417861 (Version 1)
Quarter: 2020Q4

REPORT INFORMATION
  Report Type: Spontaneous
  Country: US (occurrence: US)
  Receive Date: 20201022
  Receipt Date: 20201022
  Transmission Date: 20210114
  Serious: No
  Sender: FDA-Public Use
  Company Number: US-009507513-2010USA003256

PATIENT
  Age: 26 Year
  Sex: Male

DRUGS (3)
  1. ARISTADA [Suspect]
     Active Substance: ARIPIPRAZOLE LAUROXIL
     Indication: SCHIZOPHRENIA
     Dosage: FORMULATION: PREFILLED SYRINGE XTR INJECTABLE SUSP. DOSE/FREQUENCY: 882 MG, ONCE A MONTH (QMO)
     Route: 030
  2. CELESTONE SOLUSPAN [Suspect]
     Active Substance: BETAMETHASONE ACETATE\BETAMETHASONE SODIUM PHOSPHATE
     Dosage: UNK
     Dates: start: 202002, end: 202002
  3. ARISTADA [Suspect]
     Active Substance: ARIPIPRAZOLE LAUROXIL
     Dosage: FORMULATION: PREFILLED SYRINGE XTR INJECTABLE SUSP. DOSE/FREQUENCY: 882 MG, ONCE A MONTH (QMO)
     Route: 030
     Dates: start: 20200804

REACTIONS (1)
  - Therapeutic product effect decreased [Not Recovered/Not Resolved]

NARRATIVE: CASE EVENT DATE: 202002
